FAERS Safety Report 25258374 (Version 1)
Quarter: 2025Q2

REPORT INFORMATION
  Report Type: Spontaneous
  Country: US (occurrence: US)
  Receive Date: 20250501
  Receipt Date: 20250501
  Transmission Date: 20250717
  Serious: Yes (Hospitalization)
  Sender: DR REDDYS
  Company Number: US-DRL-USA-USA/2025/04/006342

PATIENT
  Age: 31 Year
  Sex: Female

DRUGS (10)
  1. PREGABALIN [Suspect]
     Active Substance: PREGABALIN
     Indication: Cancer pain
  2. NORTRIPTYLINE [Suspect]
     Active Substance: NORTRIPTYLINE
     Indication: Cancer pain
     Dosage: EVERY NIGHT AT BEDTIME (QHS)
     Route: 048
  3. FENTANYL [Concomitant]
     Active Substance: FENTANYL
     Indication: Cancer pain
  4. FENTANYL [Concomitant]
     Active Substance: FENTANYL
  5. FENTANYL [Concomitant]
     Active Substance: FENTANYL
  6. FENTANYL [Concomitant]
     Active Substance: FENTANYL
     Dosage: FENTANYL 300 MCG PATCH Q72H
  7. FENTANYL [Concomitant]
     Active Substance: FENTANYL
     Dosage: AS AND WHEN REQUIRED (PRN)
     Route: 002
  8. KETAMINE [Concomitant]
     Active Substance: KETAMINE
     Indication: Cancer pain
     Dosage: 30 MG/HOUR
  9. METHADONE [Concomitant]
     Active Substance: METHADONE HYDROCHLORIDE
     Indication: Cancer pain
     Route: 048
  10. LORAZEPAM [Concomitant]
     Active Substance: LORAZEPAM
     Indication: Cancer pain
     Dosage: AS AND WHEN REQUIRED (PRN)
     Route: 042

REACTIONS (1)
  - Drug ineffective for unapproved indication [Unknown]
